FAERS Safety Report 7416416-5 (Version None)
Quarter: 2011Q2

REPORT INFORMATION
  Report Type: 
  Country: None (occurrence: None)
  Receive Date: 20110414
  Receipt Date: 20110405
  Transmission Date: 20111010
  Serious: Yes (Other)
  Sender: FDA-Public Use
  Company Number: US-BAYER-2011-030708

PATIENT
  Age: 20 Year
  Sex: Female

DRUGS (1)
  1. MIDOL MENSTRUAL COMPLETE CAPLETS [Suspect]
     Indication: SELF INJURIOUS BEHAVIOUR
     Dosage: 8 DF, ONCE, BOTTLE COUNT 40S
     Route: 048
     Dates: start: 20110405

REACTIONS (2)
  - CHEST PAIN [None]
  - NERVOUSNESS [None]
